FAERS Safety Report 20832797 (Version 1)
Quarter: 2022Q2

REPORT INFORMATION
  Report Type: Spontaneous
  Country: CA (occurrence: CA)
  Receive Date: 20220516
  Receipt Date: 20220516
  Transmission Date: 20220721
  Serious: Yes (Other)
  Sender: FDA-Public Use
  Company Number: CA-MYLANLABS-2022M1034272

PATIENT
  Sex: Female
  Weight: 68.04 kg

DRUGS (3)
  1. SYNTHROID [Suspect]
     Active Substance: LEVOTHYROXINE SODIUM
     Indication: Autoimmune thyroiditis
     Dosage: 100 MICROGRAM, AM (IN THE MORNING ON AN EMPTY STOMACH)
     Route: 048
  2. CYTOMEL [Concomitant]
     Active Substance: LIOTHYRONINE SODIUM
     Indication: Hypothyroidism
     Dosage: 5 MICROGRAM
  3. CETANIL [Concomitant]
     Indication: Hypothyroidism
     Dosage: 5 MICROGRAM

REACTIONS (3)
  - Hypothyroidism [Not Recovered/Not Resolved]
  - Hypersensitivity [Not Recovered/Not Resolved]
  - Drug ineffective [Unknown]
